FAERS Safety Report 23642651 (Version 1)
Quarter: 2024Q1

REPORT INFORMATION
  Report Type: Spontaneous
  Country: US (occurrence: US)
  Receive Date: 20240318
  Receipt Date: 20240318
  Transmission Date: 20240410
  Serious: No
  Sender: FDA-Public Use
  Company Number: US-INSUD PHARMA-2403US02147

PATIENT

DRUGS (4)
  1. PROGESTERONE [Suspect]
     Active Substance: PROGESTERONE
     Indication: Hormone therapy
     Dosage: UNK
     Route: 048
     Dates: start: 20240220
  2. PROGESTERONE [Suspect]
     Active Substance: PROGESTERONE
     Indication: Postmenopause
  3. ESTROGENS [Concomitant]
     Active Substance: ESTROGENS
     Indication: Hormone therapy
  4. ESTROGENS [Concomitant]
     Active Substance: ESTROGENS
     Indication: Postmenopause

REACTIONS (7)
  - Insomnia [Not Recovered/Not Resolved]
  - Night sweats [Not Recovered/Not Resolved]
  - Product complaint [Unknown]
  - Product use in unapproved indication [Unknown]
  - Poor quality product administered [Unknown]
  - Product quality issue [Unknown]
  - Product odour abnormal [Unknown]

NARRATIVE: CASE EVENT DATE: 20240101
